FAERS Safety Report 24331812 (Version 3)
Quarter: 2025Q3

REPORT INFORMATION
  Report Type: Report from Study
  Country: MX (occurrence: MX)
  Receive Date: 20240918
  Receipt Date: 20250803
  Transmission Date: 20251020
  Serious: Yes (Other)
  Sender: ALEXION PHARMACEUTICALS
  Company Number: 2024A182806

PATIENT
  Age: 13 Year
  Sex: Male
  Weight: 44 kg

DRUGS (1)
  1. SELUMETINIB [Suspect]
     Active Substance: SELUMETINIB
     Indication: Neurofibromatosis
     Dosage: 60 MILLIGRAM, QD
     Dates: start: 20240420

REACTIONS (8)
  - Hepatitis [Not Recovered/Not Resolved]
  - Haematochezia [Recovered/Resolved]
  - Acne [Recovering/Resolving]
  - Constipation [Recovered/Resolved]
  - Onychomadesis [Recovered/Resolved]
  - Heart rate increased [Recovered/Resolved]
  - Alopecia [Not Recovered/Not Resolved]
  - Skin exfoliation [Not Recovered/Not Resolved]

NARRATIVE: CASE EVENT DATE: 20240521
